FAERS Safety Report 9314295 (Version 2)
Quarter: 2013Q3

REPORT INFORMATION
  Report Type: Report from Study
  Country: US (occurrence: US)
  Receive Date: 20130529
  Receipt Date: 20130726
  Transmission Date: 20140515
  Serious: Yes (Hospitalization)
  Sender: FDA-Public Use
  Company Number: PHEH2013US011684

PATIENT
  Age: 18 Year
  Sex: Female
  Weight: 95.69 kg

DRUGS (3)
  1. TOBI [Suspect]
     Indication: CYSTIC FIBROSIS
     Dosage: 300 MG, BID
  2. REGLAN [Concomitant]
     Dosage: UNK
  3. SALINE [Concomitant]
     Dosage: UNK

REACTIONS (1)
  - Oxygen saturation decreased [Unknown]
